FAERS Safety Report 18139175 (Version 1)
Quarter: 2020Q3

REPORT INFORMATION
  Report Type: Spontaneous
  Country: US (occurrence: US)
  Receive Date: 20200812
  Receipt Date: 20200812
  Transmission Date: 20201103
  Serious: No
  Sender: FDA-Public Use
  Company Number: US-GLAXOSMITHKLINE-US2020AMR153814

PATIENT
  Sex: Female

DRUGS (1)
  1. IMITREX [Suspect]
     Active Substance: SUMATRIPTAN SUCCINATE
     Indication: PRODUCT USED FOR UNKNOWN INDICATION
     Dosage: 100 MG
     Route: 048

REACTIONS (6)
  - Nonspecific reaction [Unknown]
  - Feeling abnormal [Recovered/Resolved]
  - Hypersensitivity [Unknown]
  - Drug intolerance [Unknown]
  - Gait disturbance [Recovered/Resolved]
  - Illness [Recovered/Resolved]
